FAERS Safety Report 9277333 (Version 1)
Quarter: 2013Q2

REPORT INFORMATION
  Report Type: Spontaneous
  Country: US (occurrence: None)
  Receive Date: 20130503
  Receipt Date: 20130503
  Transmission Date: 20140414
  Serious: Yes (Other)
  Sender: FDA-Public Use
  Company Number: None

PATIENT
  Age: 45 Year
  Sex: Female
  Weight: 120.5 kg

DRUGS (3)
  1. ZITHROMAX [Suspect]
     Indication: PNEUMONIA
     Dosage: QD 5 DAYS?MULTIPLE TIMES
     Route: 048
  2. ZITHROMAX [Suspect]
     Indication: BRONCHITIS
     Dosage: QD 5 DAYS?MULTIPLE TIMES
     Route: 048
  3. AZITHROMYCIN [Suspect]
     Indication: PERTUSSIS
     Dosage: QD 5 DAYS
     Route: 048
     Dates: start: 201211

REACTIONS (4)
  - Tendon rupture [None]
  - Neuralgia [None]
  - Treatment noncompliance [None]
  - Drug administration error [None]
